FAERS Safety Report 13726203 (Version 5)
Quarter: 2018Q3

REPORT INFORMATION
  Report Type: Spontaneous
  Country: US (occurrence: US)
  Receive Date: 20170706
  Receipt Date: 20180719
  Transmission Date: 20181010
  Serious: Yes (Hospitalization, Other)
  Sender: FDA-Public Use
  Company Number: US-PFIZER INC-2017291192

PATIENT
  Age: 59 Year
  Sex: Female

DRUGS (1)
  1. XELJANZ XR [Suspect]
     Active Substance: TOFACITINIB CITRATE
     Dosage: 11 MG, DAILY (MEDICATION PASSED EVERY NIGHT)
     Dates: start: 201702

REACTIONS (6)
  - Drug dose omission [Not Recovered/Not Resolved]
  - Joint dislocation [Unknown]
  - Kidney infection [Unknown]
  - International normalised ratio increased [Unknown]
  - Prothrombin time prolonged [Unknown]
  - Infection [Unknown]
